FAERS Safety Report 4809979-7 (Version None)
Quarter: 2005Q4

REPORT INFORMATION
  Report Type: 
  Country: None (occurrence: None)
  Receive Date: 20051024
  Receipt Date: 20051024
  Transmission Date: 20060501
  Serious: Yes (Hospitalization)
  Sender: FDA-Public Use
  Company Number: None

PATIENT
  Age: 64 Year
  Sex: Male
  Weight: 103 kg

DRUGS (2)
  1. OPTIMARK [Suspect]
     Indication: CORONARY ARTERY DISEASE
     Dosage: 41 CC    ONCE    IV BOLUS
     Route: 040
     Dates: start: 20031215, end: 20031215
  2. OPTIMARK [Suspect]
     Indication: VENTRICULAR DYSFUNCTION
     Dosage: 41 CC    ONCE    IV BOLUS
     Route: 040
     Dates: start: 20031215, end: 20031215

REACTIONS (2)
  - PLEURAL EFFUSION [None]
  - POST PROCEDURAL COMPLICATION [None]
